FAERS Safety Report 5715831-5 (Version None)
Quarter: 2008Q2

REPORT INFORMATION
  Report Type: 
  Country: None (occurrence: None)
  Receive Date: 20080424
  Receipt Date: 20080413
  Transmission Date: 20081010
  Serious: Yes (Death)
  Sender: FDA-Public Use
  Company Number: IL-NOVOPROD-273855

PATIENT
  Age: 70 Year
  Sex: Female

DRUGS (11)
  1. NOVOSEVEN [Suspect]
     Indication: HAEMORRHAGE
     Dosage: 16.9 MG, UNK
     Dates: start: 20080406, end: 20080406
  2. NOVOSEVEN [Suspect]
     Dosage: 8.4 MG, UNK
     Dates: start: 20080406
  3. CLOPIDOGREL [Concomitant]
  4. NIFEDIPINE [Concomitant]
  5. ACARBOSE [Concomitant]
  6. METFORMIN HCL [Concomitant]
  7. ELTROXIN [Concomitant]
  8. FUROSEMIDE [Concomitant]
  9. VALSARTAN [Concomitant]
  10. LERCANIDIPINE [Concomitant]
  11. BUDESONIDE [Concomitant]

REACTIONS (1)
  - DEATH [None]
